FAERS Safety Report 13431047 (Version 10)
Quarter: 2017Q4

REPORT INFORMATION
  Report Type: Spontaneous
  Country: US (occurrence: US)
  Receive Date: 20170412
  Receipt Date: 20171226
  Transmission Date: 20180320
  Serious: Yes (Congenital Anomaly, Other)
  Sender: FDA-Public Use
  Company Number: PHEH2017US010520

PATIENT
  Sex: Male

DRUGS (2)
  1. ZOFRAN [Suspect]
     Active Substance: ONDANSETRON HYDROCHLORIDE
     Indication: FOETAL EXPOSURE DURING PREGNANCY
     Dosage: MOTHER^S DOSE: 4 MG, Q4H
     Route: 064
  2. ZOFRAN [Suspect]
     Active Substance: ONDANSETRON HYDROCHLORIDE
     Indication: FOETAL EXPOSURE DURING PREGNANCY
     Route: 064

REACTIONS (53)
  - Anomalous pulmonary venous connection [Unknown]
  - Periarthritis [Unknown]
  - Stomatitis [Unknown]
  - Fatigue [Unknown]
  - Muscle strain [Unknown]
  - Cellulitis [Unknown]
  - Acute respiratory failure [Unknown]
  - Bronchitis [Unknown]
  - Rhinorrhoea [Unknown]
  - Jaundice [Unknown]
  - Decreased appetite [Unknown]
  - Groin pain [Unknown]
  - Myofascial pain syndrome [Unknown]
  - Ecchymosis [Unknown]
  - Foetal exposure during pregnancy [Unknown]
  - Ear infection [Unknown]
  - Upper-airway cough syndrome [Unknown]
  - Photophobia [Unknown]
  - Gastrooesophageal reflux disease [Unknown]
  - Joint swelling [Unknown]
  - Constipation [Unknown]
  - Left-to-right cardiac shunt [Unknown]
  - Right atrial enlargement [Unknown]
  - Injury [Unknown]
  - Back pain [Unknown]
  - Arthralgia [Unknown]
  - Atrial septal defect [Unknown]
  - Pleural effusion [Unknown]
  - Depression [Unknown]
  - Haemoptysis [Unknown]
  - Oropharyngeal pain [Unknown]
  - Headache [Not Recovered/Not Resolved]
  - Dizziness [Unknown]
  - Cardiomegaly [Unknown]
  - Pulmonary valve stenosis [Unknown]
  - Sneezing [Unknown]
  - Cough [Unknown]
  - Rhinitis allergic [Unknown]
  - Abdominal discomfort [Unknown]
  - Right ventricular enlargement [Unknown]
  - Tricuspid valve incompetence [Unknown]
  - Acid-base balance disorder mixed [Unknown]
  - Pain [Unknown]
  - Neck pain [Unknown]
  - Cardiac murmur [Unknown]
  - Sinusitis [Unknown]
  - Musculoskeletal pain [Unknown]
  - Migraine [Unknown]
  - Pharyngitis [Unknown]
  - Upper respiratory tract infection [Unknown]
  - Urticaria [Unknown]
  - Ligament sprain [Unknown]
  - Essential hypertension [Unknown]
